FAERS Safety Report 8983681 (Version 1)
Quarter: 2012Q4

REPORT INFORMATION
  Report Type: 
  Country: GB (occurrence: GB)
  Receive Date: 20121224
  Receipt Date: 20121224
  Transmission Date: 20130627
  Serious: Yes (Disabling)
  Sender: FDA-Public Use
  Company Number: GB-009507513-1212GBR008651

PATIENT
  Age: 61 Year
  Sex: Male
  Weight: 65 kg

DRUGS (3)
  1. FINASTERIDE [Suspect]
     Indication: BENIGN PROSTATIC HYPERPLASIA
     Dosage: 5 mg, qd
     Route: 048
     Dates: start: 20121031, end: 20121203
  2. TAMSULOSIN HYDROCHLORIDE [Suspect]
     Indication: BENIGN PROSTATIC HYPERPLASIA
     Dosage: 400 Microgram, qd
     Route: 048
     Dates: start: 20121031, end: 20121203
  3. SAW PALMETTO [Concomitant]
     Indication: BENIGN PROSTATIC HYPERPLASIA
     Dosage: UNK

REACTIONS (7)
  - Genital hypoaesthesia [Not Recovered/Not Resolved]
  - Impatience [Not Recovered/Not Resolved]
  - Irritability [Not Recovered/Not Resolved]
  - Social avoidant behaviour [Not Recovered/Not Resolved]
  - Sexual dysfunction [Not Recovered/Not Resolved]
  - Depressed mood [Not Recovered/Not Resolved]
  - Erectile dysfunction [Not Recovered/Not Resolved]
